FAERS Safety Report 4276638-1 (Version None)
Quarter: 2004Q1

REPORT INFORMATION
  Report Type: 
  Country: None (occurrence: None)
  Receive Date: 20040120
  Receipt Date: 20040107
  Transmission Date: 20041129
  Serious: Yes (Hospitalization)
  Sender: FDA-Public Use
  Company Number: SX03010087

PATIENT
  Age: 62 Year
  Sex: Male

DRUGS (1)
  1. XOPENEX [Suspect]
     Indication: DYSPNOEA
     Dosage: 1.25MG/3ML 1X INHALATION
     Route: 055
     Dates: start: 20031217

REACTIONS (3)
  - ASTHENIA [None]
  - HYPOAESTHESIA [None]
  - HYPOKINESIA [None]
